FAERS Safety Report 5584710-9 (Version None)
Quarter: 2008Q1

REPORT INFORMATION
  Report Type: 
  Country: None (occurrence: None)
  Receive Date: 20080108
  Receipt Date: 20071231
  Transmission Date: 20080703
  Serious: Yes (Death)
  Sender: FDA-Public Use
  Company Number: US-MERCK-0801USA00210

PATIENT
  Age: 65 Year
  Sex: Female

DRUGS (10)
  1. ELAVIL [Suspect]
     Route: 048
  2. [THERAPY UNSPECIFIED] [Suspect]
     Route: 048
  3. [THERAPY UNSPECIFIED] [Suspect]
     Route: 048
  4. BUSPIRONE HYDROCHLORIDE [Suspect]
     Route: 048
  5. OXYCODONE [Suspect]
     Route: 048
  6. [THERAPY UNSPECIFIED] [Suspect]
     Route: 048
  7. HYDRODIURIL [Suspect]
     Route: 048
  8. [THERAPY UNSPECIFIED] [Suspect]
     Route: 048
  9. COUGH, COLD, AND FLU THERAPIES (UNSPECIFIED) [Suspect]
     Route: 048
  10. CLONAZEPAM [Suspect]
     Route: 048

REACTIONS (2)
  - COMPLETED SUICIDE [None]
  - OVERDOSE [None]
